FAERS Safety Report 10763845 (Version 8)
Quarter: 2015Q2

REPORT INFORMATION
  Report Type: Spontaneous
  Country: US (occurrence: US)
  Receive Date: 20150204
  Receipt Date: 20150626
  Transmission Date: 20150821
  Serious: Yes (Hospitalization)
  Sender: FDA-Public Use
  Company Number: US-ACTELION-A-US2015-112090

PATIENT
  Age: 19 Year
  Sex: Female

DRUGS (6)
  1. ADCIRCA [Concomitant]
     Active Substance: TADALAFIL
     Dosage: UNK
  2. CELLCEPT [Concomitant]
     Active Substance: MYCOPHENOLATE MOFETIL\MYCOPHENOLATE MOFETIL HYDROCHLORIDE
     Dosage: UNK
  3. VELETRI [Suspect]
     Active Substance: EPOPROSTENOL
     Indication: PULMONARY HYPERTENSION
     Dosage: 35 NG/KG, PER MIN
     Route: 042
     Dates: start: 20120310
  4. VELETRI [Suspect]
     Active Substance: EPOPROSTENOL
     Dosage: 30.45 NG/KG, PER MIN
     Route: 042
     Dates: start: 20120224
  5. COUMADIN [Concomitant]
     Active Substance: WARFARIN SODIUM
  6. LETAIRIS [Concomitant]
     Active Substance: AMBRISENTAN
     Dosage: UNK

REACTIONS (7)
  - Lupus nephritis [Unknown]
  - Influenza [Unknown]
  - Systemic lupus erythematosus [Unknown]
  - Pharyngitis streptococcal [Unknown]
  - Respiratory syncytial virus infection [Unknown]
  - Dyspnoea [Unknown]
  - Chest pain [Unknown]

NARRATIVE: CASE EVENT DATE: 20150125
